FAERS Safety Report 15122656 (Version 4)
Quarter: 2018Q4

REPORT INFORMATION
  Report Type: Spontaneous
  Country: US (occurrence: US)
  Receive Date: 20180709
  Receipt Date: 20181220
  Transmission Date: 20190204
  Serious: Yes (Other)
  Sender: FDA-Public Use
  Company Number: US-PFIZER INC-2018270992

PATIENT
  Age: 47 Year
  Sex: Female

DRUGS (4)
  1. IRON [Concomitant]
     Active Substance: IRON
     Dosage: UNK
  2. IBRANCE [Suspect]
     Active Substance: PALBOCICLIB
     Indication: BREAST CANCER FEMALE
     Dosage: 125 MG, UNK
  3. LUPRON [Concomitant]
     Active Substance: LEUPROLIDE ACETATE
     Dosage: UNK
  4. IBRANCE [Suspect]
     Active Substance: PALBOCICLIB
     Dosage: 100 MG, CYCLIC (EVERY DAY FOR 21 DAYS, THEN 7 DAYS OFF)
     Route: 048
     Dates: start: 201803

REACTIONS (11)
  - Muscle spasms [Unknown]
  - Alopecia [Unknown]
  - Pain in extremity [Unknown]
  - Product dose omission [Unknown]
  - White blood cell count decreased [Unknown]
  - Haemorrhage [Unknown]
  - Epistaxis [Unknown]
  - Premature menopause [Unknown]
  - Fatigue [Unknown]
  - Faeces soft [Recovered/Resolved]
  - Sensitive skin [Recovered/Resolved]
